FAERS Safety Report 5126146-0 (Version None)
Quarter: 2006Q3

REPORT INFORMATION
  Report Type: 
  Country: None (occurrence: None)
  Receive Date: 20060823
  Receipt Date: 20060304
  Transmission Date: 20061208
  Serious: Yes (Life-Threatening, Other)
  Sender: FDA-Public Use
  Company Number: 2006026036

PATIENT
  Age: 55 Year
  Sex: Female

DRUGS (10)
  1. NORVASC [Suspect]
     Indication: HYPERTENSION
     Dosage: 10 MG (10 MG,QD INTERVAL: EVERY DAY), ORAL
     Route: 048
     Dates: start: 20060206, end: 20060217
  2. BENADRYL [Concomitant]
  3. LISINOPRIL [Concomitant]
  4. NEXIUM [Concomitant]
  5. BACTROBAN (MUPIROCIN) [Concomitant]
  6. LANTUS [Concomitant]
  7. NITROPASTE (GLYCERYL TRINITRATE) [Concomitant]
  8. LOPRESSOR [Concomitant]
  9. PERCOCET [Concomitant]
  10. NOVOLOG [Concomitant]

REACTIONS (2)
  - ANGIONEUROTIC OEDEMA [None]
  - DRUG INEFFECTIVE [None]
